FAERS Safety Report 5558765-1 (Version None)
Quarter: 2007Q4

REPORT INFORMATION
  Report Type: 
  Country: None (occurrence: None)
  Receive Date: 20071214
  Receipt Date: 20070906
  Transmission Date: 20080405
  Serious: Yes (Hospitalization)
  Sender: FDA-Public Use
  Company Number: US-ABBOTT-07P-163-0416463-00

PATIENT
  Sex: Male
  Weight: 63.56 kg

DRUGS (3)
  1. HUMIRA [Suspect]
     Indication: CROHN'S DISEASE
     Route: 058
     Dates: start: 20070813, end: 20070813
  2. HUMIRA [Suspect]
     Route: 058
     Dates: start: 20070828, end: 20070828
  3. HUMIRA [Suspect]
     Route: 058
     Dates: end: 20070906

REACTIONS (15)
  - ABDOMINAL PAIN [None]
  - ABDOMINAL PAIN UPPER [None]
  - FALL [None]
  - HAEMORRHAGE [None]
  - INJECTION SITE ERYTHEMA [None]
  - INJECTION SITE INDURATION [None]
  - INJECTION SITE PAIN [None]
  - INJECTION SITE SWELLING [None]
  - MALAISE [None]
  - MUSCLE TIGHTNESS [None]
  - MUSCULAR WEAKNESS [None]
  - NAUSEA [None]
  - ORAL INTAKE REDUCED [None]
  - SKIN INFECTION [None]
  - UNEVALUABLE EVENT [None]
